FAERS Safety Report 5010542-6 (Version None)
Quarter: 2006Q2

REPORT INFORMATION
  Report Type: 
  Country: None (occurrence: None)
  Receive Date: 20060524
  Receipt Date: 20060524
  Transmission Date: 20061013
  Serious: Yes (Hospitalization)
  Sender: FDA-Public Use
  Company Number: None

PATIENT
  Age: 2 Year
  Sex: Male

DRUGS (2)
  1. MORPHINE [Suspect]
     Indication: GASTROINTESTINAL TUBE INSERTION
     Dosage: 2 MG ONE TIME ONLY IV
     Route: 042
  2. MIDAZOLAM HCL [Suspect]
     Dosage: 4 MG ONE TIME ONLY IV
     Route: 042

REACTIONS (3)
  - DEPRESSED LEVEL OF CONSCIOUSNESS [None]
  - POST PROCEDURAL COMPLICATION [None]
  - SOMNOLENCE [None]
